FAERS Safety Report 5187856-2 (Version None)
Quarter: 2006Q4

REPORT INFORMATION
  Report Type: 
  Country: None (occurrence: None)
  Receive Date: 20061221
  Receipt Date: 20060918
  Transmission Date: 20070319
  Serious: No
  Sender: FDA-Public Use
  Company Number: US-GLAXOSMITHKLINE-A0620532A

PATIENT
  Age: 60 Year
  Sex: Female

DRUGS (4)
  1. AVANDARYL [Suspect]
     Dosage: .5TAB TWICE PER DAY
     Route: 048
     Dates: start: 20060918
  2. CARDIZEM [Concomitant]
  3. SYNTHROID [Concomitant]
  4. PRAVACHOL [Concomitant]

REACTIONS (3)
  - CONSTIPATION [None]
  - DRUG ADMINISTRATION ERROR [None]
  - PALPITATIONS [None]
